FAERS Safety Report 7154157-2 (Version None)
Quarter: 2010Q4

REPORT INFORMATION
  Report Type: 
  Country: None (occurrence: None)
  Receive Date: 20101213
  Receipt Date: 20101202
  Transmission Date: 20110411
  Serious: Yes (Other)
  Sender: FDA-Public Use
  Company Number: FR-PFIZER INC-2010162224

PATIENT
  Age: 41 Year
  Sex: Female

DRUGS (8)
  1. ZYVOX [Suspect]
     Indication: STAPHYLOCOCCAL ABSCESS
     Dosage: 600 MG, 2X/DAY
     Route: 048
     Dates: start: 20101020, end: 20101021
  2. SOLUPRED [Concomitant]
  3. SINGULAIR [Concomitant]
  4. AERIUS [Concomitant]
  5. NEXIUM [Concomitant]
  6. PEGASYS [Concomitant]
  7. BRICANYL [Concomitant]
  8. ATROVENT [Concomitant]

REACTIONS (4)
  - ASTHMATIC CRISIS [None]
  - DYSPNOEA EXERTIONAL [None]
  - EYELID OEDEMA [None]
  - RESPIRATORY DISORDER [None]
